FAERS Safety Report 9793363 (Version 3)
Quarter: 2014Q1

REPORT INFORMATION
  Report Type: Spontaneous
  Country: US (occurrence: US)
  Receive Date: 20140102
  Receipt Date: 20140307
  Transmission Date: 20141002
  Serious: Yes (Other)
  Sender: FDA-Public Use
  Company Number: US-PFIZER INC-2013374334

PATIENT
  Age: 16 Year
  Sex: Male

DRUGS (4)
  1. GEODON [Suspect]
     Indication: BIPOLAR DISORDER
     Dosage: 160 MG, DAILY
     Dates: start: 20130911
  2. GEODON [Suspect]
     Indication: AGGRESSION
  3. GEODON [Suspect]
     Indication: IRRITABILITY
  4. BENZOYL PEROXIDE [Concomitant]
     Indication: ACNE
     Dosage: UNK
     Route: 061

REACTIONS (7)
  - Off label use [Unknown]
  - Neutropenia [Unknown]
  - Psychomotor skills impaired [Unknown]
  - Disturbance in attention [Unknown]
  - Psychomotor hyperactivity [Unknown]
  - White blood cell count abnormal [Unknown]
  - Glycosylated haemoglobin decreased [Unknown]
